FAERS Safety Report 12127120 (Version 1)
Quarter: 2016Q1

REPORT INFORMATION
  Report Type: Spontaneous
  Country: US (occurrence: US)
  Receive Date: 20160229
  Receipt Date: 20160229
  Transmission Date: 20160526
  Serious: No
  Sender: FDA-Public Use
  Company Number: US-009507513-1602USA011068

PATIENT
  Age: 33 Year
  Sex: Female

DRUGS (3)
  1. ALBUTEROL SULFATE. [Suspect]
     Active Substance: ALBUTEROL SULFATE
  2. MEDROL [Suspect]
     Active Substance: METHYLPREDNISOLONE
  3. AMOXICILLIN. [Suspect]
     Active Substance: AMOXICILLIN

REACTIONS (1)
  - Drug effect incomplete [Unknown]
